FAERS Safety Report 9815591 (Version 1)
Quarter: 2014Q1

REPORT INFORMATION
  Report Type: Spontaneous
  Country: US (occurrence: US)
  Receive Date: 20140114
  Receipt Date: 20140114
  Transmission Date: 20141002
  Serious: Yes (Hospitalization)
  Sender: FDA-Public Use
  Company Number: US-BAYER-2014-004515

PATIENT
  Age: 37 Year
  Sex: Female
  Weight: 53 kg

DRUGS (1)
  1. YAZ [Suspect]
     Indication: ACNE

REACTIONS (3)
  - Pelvic venous thrombosis [Recovering/Resolving]
  - Deep vein thrombosis [Recovering/Resolving]
  - Thrombophlebitis superficial [None]
